FAERS Safety Report 11108958 (Version 2)
Quarter: 2015Q3

REPORT INFORMATION
  Report Type: Spontaneous
  Country: US (occurrence: US)
  Receive Date: 20150513
  Receipt Date: 20150826
  Transmission Date: 20151125
  Serious: No
  Sender: FDA-Public Use
  Company Number: US-ASTRAZENECA-2014SE57700

PATIENT
  Age: 65 Year
  Sex: Male
  Weight: 104.3 kg

DRUGS (11)
  1. JANUVIA [Concomitant]
     Active Substance: SITAGLIPTIN PHOSPHATE
  2. SOLOSTAR [Concomitant]
     Active Substance: DEVICE
  3. BYDUREON [Suspect]
     Active Substance: EXENATIDE
     Indication: TYPE 2 DIABETES MELLITUS
     Route: 058
     Dates: start: 201405
  4. LISINOPRIL. [Concomitant]
     Active Substance: LISINOPRIL
  5. LORIC [Concomitant]
  6. FLOMAX [Concomitant]
     Active Substance: TAMSULOSIN HYDROCHLORIDE
  7. PRAVASTATIN [Concomitant]
     Active Substance: PRAVASTATIN\PRAVASTATIN SODIUM
  8. GLIMEPERIDE [Concomitant]
     Active Substance: GLIMEPIRIDE
     Indication: DIABETES MELLITUS
  9. AMLODIPINE [Concomitant]
     Active Substance: AMLODIPINE BESYLATE
  10. TRICOR [Concomitant]
     Active Substance: FENOFIBRATE
  11. PROSCAR [Concomitant]
     Active Substance: FINASTERIDE

REACTIONS (5)
  - Drug administration error [Unknown]
  - Injection site mass [Recovered/Resolved]
  - Underdose [Unknown]
  - Injection site haemorrhage [Recovered/Resolved]
  - Product quality issue [Unknown]

NARRATIVE: CASE EVENT DATE: 2014
